FAERS Safety Report 23019330 (Version 2)
Quarter: 2023Q4

REPORT INFORMATION
  Report Type: Spontaneous
  Country: US (occurrence: US)
  Receive Date: 20231003
  Receipt Date: 20231010
  Transmission Date: 20240110
  Serious: No
  Sender: FDA-Public Use
  Company Number: US-AMGEN-USASP2023173570

PATIENT

DRUGS (1)
  1. NEUPOGEN [Suspect]
     Active Substance: FILGRASTIM
     Indication: Neutropenia
     Dosage: UNK
     Route: 065

REACTIONS (1)
  - Back pain [Unknown]
